FAERS Safety Report 12589773 (Version 2)
Quarter: 2016Q3

REPORT INFORMATION
  Report Type: Spontaneous
  Country: US (occurrence: US)
  Receive Date: 20160725
  Receipt Date: 20160802
  Transmission Date: 20161109
  Serious: Yes (Other)
  Sender: FDA-Public Use
  Company Number: US-PFIZER INC-3100141

PATIENT
  Age: 57 Year
  Sex: Male

DRUGS (2)
  1. VANCOMYCIN HCL [Suspect]
     Active Substance: VANCOMYCIN HYDROCHLORIDE
     Indication: OSTEOMYELITIS
     Dosage: UNK, DAILY (FOR FOUR MONTHS)
     Route: 042
     Dates: start: 201504
  2. ROCEPHIN [Suspect]
     Active Substance: CEFTRIAXONE SODIUM
     Indication: OSTEOMYELITIS
     Dosage: UNK, DAILY (FOR 5-6 WEEKS)
     Route: 042
     Dates: start: 201508

REACTIONS (1)
  - Drug effect incomplete [Recovering/Resolving]
